FAERS Safety Report 6349569-0 (Version None)
Quarter: 2009Q3

REPORT INFORMATION
  Report Type: 
  Country: None (occurrence: None)
  Receive Date: 20090911
  Receipt Date: 20090902
  Transmission Date: 20100115
  Serious: Yes (Hospitalization)
  Sender: FDA-Public Use
  Company Number: US-JNJFOC-20090901940

PATIENT
  Sex: Female
  Weight: 113 kg

DRUGS (9)
  1. INVEGA [Suspect]
     Indication: SCHIZOAFFECTIVE DISORDER
     Route: 048
  2. AMBIEN [Concomitant]
     Route: 048
  3. CELEXA [Concomitant]
     Route: 048
  4. PHENYTOIN [Concomitant]
     Route: 048
  5. HYDROCHLOROTHIAZIDE [Concomitant]
     Route: 048
  6. SINEMET [Concomitant]
     Route: 048
  7. LAMICTAL [Concomitant]
     Route: 048
  8. LOPRESSOR [Concomitant]
     Route: 048
  9. COZAAR [Concomitant]
     Route: 048

REACTIONS (3)
  - ABNORMAL BEHAVIOUR [None]
  - AGGRESSION [None]
  - AGITATION [None]
